FAERS Safety Report 8094532-5 (Version None)
Quarter: 2012Q1

REPORT INFORMATION
  Report Type: 
  Country: None (occurrence: None)
  Receive Date: 20120131
  Receipt Date: 20120130
  Transmission Date: 20120608
  Serious: Yes (Hospitalization, Other)
  Sender: FDA-Public Use
  Company Number: JP-JNJFOC-20110706869

PATIENT
  Sex: Male
  Weight: 58 kg

DRUGS (3)
  1. IRON SUCROSE [Concomitant]
     Indication: ANAEMIA
     Dates: start: 20100724, end: 20100803
  2. METHYLPREDNISOLONE [Concomitant]
     Indication: PROPHYLAXIS
     Dates: start: 20100730
  3. REMICADE [Suspect]
     Indication: CROHN'S DISEASE
     Route: 042
     Dates: start: 20100730

REACTIONS (4)
  - LIVER DISORDER [None]
  - RASH [None]
  - TYPE IV HYPERSENSITIVITY REACTION [None]
  - PYREXIA [None]
